FAERS Safety Report 25230157 (Version 5)
Quarter: 2025Q2

REPORT INFORMATION
  Report Type: Report from Study
  Country: JP (occurrence: JP)
  Receive Date: 20250423
  Receipt Date: 20250626
  Transmission Date: 20250716
  Serious: Yes (Hospitalization)
  Sender: PFIZER
  Company Number: JP-PFIZER INC-202500083452

PATIENT
  Age: 77 Year
  Sex: Female
  Weight: 38.5 kg

DRUGS (6)
  1. ELRANATAMAB [Suspect]
     Active Substance: ELRANATAMAB
     Indication: Plasma cell myeloma
     Route: 058
     Dates: start: 20240903
  2. ELRANATAMAB [Suspect]
     Active Substance: ELRANATAMAB
     Dosage: 76 MG, ONCE WEEKLY
     Dates: end: 20250121
  3. CILOSTAZOL [Concomitant]
     Active Substance: CILOSTAZOL
     Indication: Cerebrovascular accident prophylaxis
     Route: 048
     Dates: start: 2018
  4. FAMOTIDINE [Concomitant]
     Active Substance: FAMOTIDINE
     Indication: Gastritis prophylaxis
     Route: 048
     Dates: start: 20211101
  5. ACYCLOVIR [Concomitant]
     Active Substance: ACYCLOVIR
     Indication: Infection prophylaxis
     Route: 048
     Dates: start: 20211115
  6. CILNIDIPINE [Concomitant]
     Active Substance: CILNIDIPINE
     Indication: Hypertension
     Route: 048
     Dates: start: 20240831

REACTIONS (3)
  - Pneumonia [Recovered/Resolved]
  - Hypogammaglobulinaemia [Recovered/Resolved]
  - Cytomegalovirus infection [Recovered/Resolved]

NARRATIVE: CASE EVENT DATE: 20250107
